FAERS Safety Report 7217053-8 (Version None)
Quarter: 2010Q4

REPORT INFORMATION
  Report Type: 
  Country: None (occurrence: None)
  Receive Date: 20101230
  Receipt Date: 20101216
  Transmission Date: 20110411
  Serious: Yes (Other)
  Sender: FDA-Public Use
  Company Number: US-2010-2950

PATIENT

DRUGS (14)
  1. NAVELBINE [Suspect]
     Indication: NEOPLASM MALIGNANT
     Dates: start: 20101112
  2. ASPIRIN [Concomitant]
  3. FISH OIL [Concomitant]
  4. GLUCOSAMINE W/CHONDROITIN SULF. [Concomitant]
  5. VICODIN [Concomitant]
  6. NAPROXEN SODIUM [Concomitant]
  7. OMEPRAZOLE [Concomitant]
  8. ONDANSETRON [Concomitant]
  9. COMPAZINE [Concomitant]
  10. PYRIDOXINE HCL [Concomitant]
  11. SIMVASTATIN [Concomitant]
  12. ONDANSETRON [Concomitant]
  13. DEXAMETHASONE [Concomitant]
  14. CISPLATIN [Concomitant]

REACTIONS (1)
  - INJECTION SITE PHLEBITIS [None]
